FAERS Safety Report 7660156-4 (Version None)
Quarter: 2011Q3

REPORT INFORMATION
  Report Type: 
  Country: None (occurrence: None)
  Receive Date: 20110805
  Receipt Date: 20110803
  Transmission Date: 20111222
  Serious: Yes (Death, Hospitalization)
  Sender: FDA-Public Use
  Company Number: PHHY2011MX49829

PATIENT
  Sex: Female

DRUGS (1)
  1. ZOLEDRONOC ACID [Suspect]
     Indication: OSTEOPOROSIS
     Dosage: 5 MG/ 100 ML PER YEAR
     Dates: start: 20100601

REACTIONS (6)
  - RENAL FAILURE [None]
  - BLOOD CREATININE ABNORMAL [None]
  - NAUSEA [None]
  - MALNUTRITION [None]
  - DECREASED APPETITE [None]
  - DEHYDRATION [None]
